FAERS Safety Report 11868171 (Version 2)
Quarter: 2016Q1

REPORT INFORMATION
  Report Type: Spontaneous
  Country: US (occurrence: US)
  Receive Date: 20151224
  Receipt Date: 20160122
  Transmission Date: 20160526
  Serious: Yes (Hospitalization, Other)
  Sender: FDA-Public Use
  Company Number: US-ASTRAZENECA-2015SF28817

PATIENT
  Age: 549 Month
  Sex: Male
  Weight: 95.7 kg

DRUGS (7)
  1. DEPAKOTE [Suspect]
     Active Substance: DIVALPROEX SODIUM
     Indication: BIPOLAR DISORDER
     Dosage: FOUR HUGE PURPLE PILLS A DAY
     Route: 065
  2. NEURONTIN [Concomitant]
     Active Substance: GABAPENTIN
     Indication: NEURALGIA
  3. LITHIUM. [Suspect]
     Active Substance: LITHIUM
     Indication: BIPOLAR DISORDER
     Route: 065
  4. TRAZODONE [Suspect]
     Active Substance: TRAZODONE HYDROCHLORIDE
     Indication: SLEEP DISORDER
     Route: 065
  5. VIAGRA [Suspect]
     Active Substance: SILDENAFIL CITRATE
     Route: 065
  6. OXYCODONE [Suspect]
     Active Substance: OXYCODONE
     Indication: PAIN
     Dosage: 10S
     Route: 065
  7. SEROQUEL [Suspect]
     Active Substance: QUETIAPINE FUMARATE
     Indication: SLEEP DISORDER
     Route: 048

REACTIONS (15)
  - Fall [Unknown]
  - Penis injury [Unknown]
  - Vomiting [Recovered/Resolved]
  - Dysphagia [Unknown]
  - Decreased appetite [Recovered/Resolved]
  - Erectile dysfunction [Not Recovered/Not Resolved]
  - Seizure [Unknown]
  - Genital disorder male [Unknown]
  - Thrombosis [Recovered/Resolved]
  - Weight decreased [Recovered/Resolved]
  - Priapism [Recovered/Resolved with Sequelae]
  - Haematemesis [Recovered/Resolved]
  - Insomnia [Recovered/Resolved]
  - Acne [Unknown]
  - Pain [Unknown]

NARRATIVE: CASE EVENT DATE: 201510
